FAERS Safety Report 24834055 (Version 1)
Quarter: 2025Q1

REPORT INFORMATION
  Report Type: Spontaneous
  Country: CN (occurrence: CN)
  Receive Date: 20250113
  Receipt Date: 20250113
  Transmission Date: 20250409
  Serious: Yes (Hospitalization)
  Sender: STRIDES
  Company Number: CN-STRIDES ARCOLAB LIMITED-2025SP000331

PATIENT
  Age: 14 Year
  Sex: Male

DRUGS (15)
  1. CYCLOSPORINE [Suspect]
     Active Substance: CYCLOSPORINE
     Indication: Prophylaxis against graft versus host disease
     Route: 065
  2. MYCOPHENOLATE MOFETIL [Suspect]
     Active Substance: MYCOPHENOLATE MOFETIL
     Indication: Graft versus host disease in gastrointestinal tract
     Route: 065
  3. IDARUBICIN [Suspect]
     Active Substance: IDARUBICIN
     Indication: Immunosuppressant drug therapy
     Route: 065
  4. IDARUBICIN [Suspect]
     Active Substance: IDARUBICIN
     Indication: Allogenic stem cell transplantation
  5. CLADRIBINE [Suspect]
     Active Substance: CLADRIBINE
     Indication: Immunosuppressant drug therapy
     Route: 065
  6. CLADRIBINE [Suspect]
     Active Substance: CLADRIBINE
     Indication: Allogenic stem cell transplantation
  7. CYTARABINE [Suspect]
     Active Substance: CYTARABINE
     Indication: Immunosuppressant drug therapy
     Route: 065
  8. CYTARABINE [Suspect]
     Active Substance: CYTARABINE
     Indication: Allogenic stem cell transplantation
  9. CYCLOPHOSPHAMIDE [Suspect]
     Active Substance: CYCLOPHOSPHAMIDE
     Indication: Prophylaxis against graft versus host disease
     Route: 065
  10. CYCLOPHOSPHAMIDE [Suspect]
     Active Substance: CYCLOPHOSPHAMIDE
     Route: 065
  11. HUMAN IMMUNOGLOBULIN G [Suspect]
     Active Substance: HUMAN IMMUNOGLOBULIN G
     Indication: Infection prophylaxis
     Route: 042
  12. RUXOLITINIB [Suspect]
     Active Substance: RUXOLITINIB
     Indication: Graft versus host disease in lung
     Route: 065
  13. RUXOLITINIB [Suspect]
     Active Substance: RUXOLITINIB
     Indication: Graft versus host disease in gastrointestinal tract
  14. TACROLIMUS [Suspect]
     Active Substance: TACROLIMUS
     Indication: Graft versus host disease in gastrointestinal tract
     Route: 065
  15. TACROLIMUS [Suspect]
     Active Substance: TACROLIMUS
     Route: 065

REACTIONS (8)
  - Neutrophil function disorder [Unknown]
  - Gastrointestinal haemorrhage [Unknown]
  - COVID-19 [Unknown]
  - Graft versus host disease in gastrointestinal tract [Unknown]
  - Graft versus host disease in lung [Unknown]
  - Gastrointestinal mucormycosis [Unknown]
  - Disease progression [Unknown]
  - Drug ineffective for unapproved indication [Unknown]
